FAERS Safety Report 7372149-5 (Version None)
Quarter: 2011Q1

REPORT INFORMATION
  Report Type: 
  Country: None (occurrence: None)
  Receive Date: 20110322
  Receipt Date: 20110322
  Transmission Date: 20110831
  Serious: Yes (Death)
  Sender: FDA-Public Use
  Company Number: None

PATIENT
  Age: 62 Year
  Sex: Female

DRUGS (6)
  1. FUROSEMIDE [Concomitant]
  2. WARFARIN SODIUM [Concomitant]
  3. POTASSIUM CHLORIDE [Concomitant]
  4. LORAZEPAM [Concomitant]
  5. HYDROCODONE BITARTRATE + ACETAMINOPHEN [Concomitant]
  6. REVLIMID [Suspect]
     Indication: MULTIPLE MYELOMA
     Dosage: REVLIMID 25 MG DAILY ORALLY
     Route: 048
     Dates: start: 20100501

REACTIONS (5)
  - MULTIPLE MYELOMA [None]
  - NEOPLASM MALIGNANT [None]
  - FATIGUE [None]
  - DECREASED APPETITE [None]
  - NAUSEA [None]
